FAERS Safety Report 8393029-2 (Version None)
Quarter: 2012Q2

REPORT INFORMATION
  Report Type: 
  Country: None (occurrence: None)
  Receive Date: 20120529
  Receipt Date: 20120319
  Transmission Date: 20120825
  Serious: No
  Sender: FDA-Public Use
  Company Number: US-ABBOTT-12P-163-0915531-00

PATIENT
  Sex: Male
  Weight: 92.616 kg

DRUGS (7)
  1. AVINZA [Concomitant]
     Indication: BACK PAIN
  2. IBUPROFEN [Concomitant]
     Indication: PRODUCT USED FOR UNKNOWN INDICATION
  3. LUNESTA [Concomitant]
     Indication: PRODUCT USED FOR UNKNOWN INDICATION
     Dosage: AT BEDTIME
  4. INDOSAT (?) [Concomitant]
     Indication: PRODUCT USED FOR UNKNOWN INDICATION
     Dosage: 325 MG/10 MG
  5. ALAZOPRAM [Concomitant]
     Indication: DEPRESSION
  6. PRISTIQ [Concomitant]
     Indication: DEPRESSION
  7. ANDROGEL [Suspect]
     Indication: BLOOD TESTOSTERONE FREE DECREASED
     Dosage: 2 PUMPS 1 DAYS

REACTIONS (2)
  - FATIGUE [None]
  - HYPOTONIA [None]
